FAERS Safety Report 14413607 (Version 2)
Quarter: 2018Q1

REPORT INFORMATION
  Report Type: Spontaneous
  Country: FR (occurrence: FR)
  Receive Date: 20180119
  Receipt Date: 20180131
  Transmission Date: 20180509
  Serious: Yes (Other)
  Sender: FDA-Public Use
  Company Number: FR-ALLERGAN-1760422US

PATIENT
  Age: 69 Year
  Sex: Female
  Weight: 61.8 kg

DRUGS (2)
  1. BOTOX [Suspect]
     Active Substance: ONABOTULINUMTOXINA
     Indication: MUSCLE SPASTICITY
     Dosage: 300 UNITS, SINGLE
     Route: 030
     Dates: start: 20170707, end: 20170707
  2. BOTOX [Suspect]
     Active Substance: ONABOTULINUMTOXINA
     Dosage: UNK UNK, SINGLE
     Route: 030
     Dates: start: 20170707, end: 20170707

REACTIONS (3)
  - Dysphagia [Unknown]
  - Influenza like illness [Unknown]
  - Fatigue [Unknown]
